FAERS Safety Report 5084629-6 (Version None)
Quarter: 2006Q3

REPORT INFORMATION
  Report Type: 
  Country: None (occurrence: None)
  Receive Date: 20060821
  Receipt Date: 20060811
  Transmission Date: 20061208
  Serious: Yes (Other)
  Sender: FDA-Public Use
  Company Number: BR-ROCHE-459529

PATIENT
  Age: 27 Year
  Sex: Female
  Weight: 68 kg

DRUGS (8)
  1. ROACUTAN [Suspect]
     Indication: ACNE
     Dosage: THE DOSE WAS GRADUALLY DECREASED FROM 40 MG DAILY TO 20 MG DAILY TO 20 MG EACH OTHER DAY.
     Route: 048
     Dates: start: 20060215, end: 20060217
  2. ROACUTAN [Suspect]
     Route: 048
     Dates: start: 20051215, end: 20060215
  3. ROACUTAN [Suspect]
     Route: 048
     Dates: start: 20050614, end: 20051115
  4. XENICAL [Suspect]
     Indication: CONSTIPATION
     Route: 048
     Dates: start: 20060815, end: 20060815
  5. XENICAL [Suspect]
     Route: 048
     Dates: start: 20060715, end: 20060715
  6. UNSPECIFIED DRUG [Concomitant]
     Indication: CONTRACEPTION
  7. ANTIBIOTIC NOS [Concomitant]
     Indication: ACNE
     Dosage: TAKEN FOR TWO OR THREE TIMES DURING THE ISOTRETINOIN THERAPY.
     Dates: start: 20050614, end: 20060215
  8. CORTICOSTEROID NOS [Concomitant]
     Indication: ACNE
     Dosage: REPORTED AS CORTICOID. TAKEN FOR TWO OR THREE TIMES DURING THE ISOTRETINOIN THERAPY.
     Dates: start: 20050614, end: 20060215

REACTIONS (4)
  - DRUG EXPOSURE BEFORE PREGNANCY [None]
  - DRUG EXPOSURE DURING PREGNANCY [None]
  - NO ADVERSE EFFECT [None]
  - PREGNANCY [None]
